FAERS Safety Report 7338910-8 (Version None)
Quarter: 2011Q1

REPORT INFORMATION
  Report Type: 
  Country: None (occurrence: None)
  Receive Date: 20110308
  Receipt Date: 20110210
  Transmission Date: 20110831
  Serious: No
  Sender: FDA-Public Use
  Company Number: US-B.I. PHARMACEUTICALS,INC./RIDGEFIELD-2011-BP-00170BP

PATIENT
  Age: 77 Year
  Sex: Male

DRUGS (7)
  1. CARDIZEM CD [Concomitant]
  2. ZOCOR [Concomitant]
  3. PRADAXA [Suspect]
     Indication: ATRIAL FIBRILLATION
     Dosage: 300 MG
     Route: 048
     Dates: start: 20101201
  4. LOPRESSOR [Concomitant]
     Indication: HYPERTENSION
     Route: 048
  5. PRADAXA [Suspect]
     Indication: CARDIAC PACEMAKER INSERTION
  6. DIOVAN [Concomitant]
  7. COMBIVENT [Concomitant]

REACTIONS (2)
  - EPISTAXIS [None]
  - PERIPHERAL COLDNESS [None]
